FAERS Safety Report 4287798-0 (Version None)
Quarter: 2004Q1

REPORT INFORMATION
  Report Type: 
  Country: None (occurrence: None)
  Receive Date: 20040209
  Receipt Date: 20030929
  Transmission Date: 20041129
  Serious: No
  Sender: FDA-Public Use
  Company Number: US-GLAXOSMITHKLINE-A0427890A

PATIENT
  Age: 34 Year
  Sex: Female

DRUGS (1)
  1. PAXIL [Suspect]
     Indication: PANIC DISORDER
     Dosage: 12.5MG UNKNOWN
     Route: 048
     Dates: start: 20030815

REACTIONS (5)
  - CRYING [None]
  - DRUG INEFFECTIVE [None]
  - PALPITATIONS [None]
  - PANIC ATTACK [None]
  - RESPIRATION ABNORMAL [None]
